FAERS Safety Report 21658171 (Version 1)
Quarter: 2022Q4

REPORT INFORMATION
  Report Type: Spontaneous
  Country: US (occurrence: US)
  Receive Date: 20221129
  Receipt Date: 20221129
  Transmission Date: 20230112
  Serious: Yes (Hospitalization, Other)
  Sender: FDA-Public Use
  Company Number: US-CPL-003123

PATIENT
  Age: 77 Year
  Sex: Female

DRUGS (8)
  1. ROSUVASTATIN [Suspect]
     Active Substance: ROSUVASTATIN
     Indication: Prophylaxis
     Dosage: 40 MG EVERY NIGHT FOR THE LAST TWO YEARS
  2. INSULIN GLARGINE [Concomitant]
     Active Substance: INSULIN GLARGINE
  3. METFORMIN [Concomitant]
     Active Substance: METFORMIN HYDROCHLORIDE
  4. AMLODIPINE [Concomitant]
     Active Substance: AMLODIPINE BESYLATE
  5. METOPROLOL [Concomitant]
     Active Substance: METOPROLOL
  6. FUROSEMIDE [Concomitant]
     Active Substance: FUROSEMIDE
  7. APIXABAN [Concomitant]
     Active Substance: APIXABAN
  8. AMIODARONE [Concomitant]
     Active Substance: AMIODARONE
     Dosage: 100 MG TWICE DAILY

REACTIONS (1)
  - Muscle necrosis [Recovered/Resolved]
